FAERS Safety Report 5085674-7 (Version None)
Quarter: 2006Q3

REPORT INFORMATION
  Report Type: 
  Country: None (occurrence: None)
  Receive Date: 20060822
  Receipt Date: 20060809
  Transmission Date: 20061208
  Serious: Yes (Other)
  Sender: FDA-Public Use
  Company Number: JP-BRISTOL-MYERS SQUIBB COMPANY-13472865

PATIENT
  Age: 69 Year
  Sex: Male

DRUGS (1)
  1. MAXIPIME [Suspect]
     Indication: NEUTROPENIA
     Route: 042
     Dates: start: 20060123

REACTIONS (2)
  - ACTIVATED PARTIAL THROMBOPLASTIN TIME PROLONGED [None]
  - PROTHROMBIN TIME PROLONGED [None]
